FAERS Safety Report 10357456 (Version 3)
Quarter: 2014Q3

REPORT INFORMATION
  Report Type: Report from Study
  Country: US (occurrence: US)
  Receive Date: 20140801
  Receipt Date: 20140924
  Transmission Date: 20150326
  Serious: Yes (Other)
  Sender: FDA-Public Use
  Company Number: US-SA-2014SA100706

PATIENT
  Age: 65 Year
  Sex: Female

DRUGS (5)
  1. LANTUS [Suspect]
     Active Substance: INSULIN GLARGINE
     Indication: TYPE 2 DIABETES MELLITUS
     Dosage: DOSE:60 UNIT(S)
     Route: 051
     Dates: start: 20100524
  2. IRON [Concomitant]
     Active Substance: IRON
  3. HUMALOG [Concomitant]
     Active Substance: INSULIN LISPRO
     Dosage: BEFORE MEALS DOSE:7 UNIT(S)
  4. FERREX [Concomitant]
     Indication: ANAEMIA
  5. VITAMIN D [Concomitant]
     Active Substance: CHOLECALCIFEROL
     Indication: VITAMIN D DEFICIENCY
     Dosage: FREQUENCY: QWK DOSE:50000 UNIT(S)

REACTIONS (6)
  - Cholelithiasis [Unknown]
  - Insomnia [Unknown]
  - Hip fracture [Not Recovered/Not Resolved]
  - Pain [Unknown]
  - Fall [Unknown]
  - Femur fracture [Unknown]

NARRATIVE: CASE EVENT DATE: 20121016
